FAERS Safety Report 6663057-3 (Version None)
Quarter: 2010Q1

REPORT INFORMATION
  Report Type: 
  Country: None (occurrence: None)
  Receive Date: 20100329
  Receipt Date: 20090225
  Transmission Date: 20100710
  Serious: Yes (Hospitalization)
  Sender: FDA-Public Use
  Company Number: 2009EN000042

PATIENT
  Age: 16 Year
  Sex: Male
  Weight: 71.3 kg

DRUGS (5)
  1. ONCASPAR [Suspect]
     Indication: B PRECURSOR TYPE ACUTE LEUKAEMIA
     Dosage: 4825 IU; IM
     Route: 030
     Dates: start: 20081208, end: 20090126
  2. CYTOXAN [Concomitant]
  3. ARA-C [Concomitant]
  4. VINCRISTINE [Concomitant]
  5. MERCAPTOPURINE [Concomitant]

REACTIONS (1)
  - PANCREATITIS [None]
